FAERS Safety Report 7889412-1 (Version None)
Quarter: 2011Q4

REPORT INFORMATION
  Report Type: 
  Country: None (occurrence: None)
  Receive Date: 20111103
  Receipt Date: 20111027
  Transmission Date: 20120403
  Serious: Yes (Hospitalization)
  Sender: FDA-Public Use
  Company Number: US-AMGEN-USASP2011055904

PATIENT
  Sex: Female

DRUGS (7)
  1. ACLOVATE [Concomitant]
  2. LEXAPRO [Concomitant]
  3. ENBREL [Suspect]
     Indication: PSORIASIS
     Dosage: 50 MG, QWK
     Dates: start: 20071003
  4. PREVACID [Concomitant]
     Dosage: UNK
  5. MOBIC [Concomitant]
     Dosage: UNK
  6. DYAZIDE [Concomitant]
     Dosage: UNK
  7. SINGULAIR [Concomitant]
     Dosage: UNK

REACTIONS (5)
  - VOMITING [None]
  - ARTHROPATHY [None]
  - DIARRHOEA [None]
  - NAUSEA [None]
  - PSORIATIC ARTHROPATHY [None]
